FAERS Safety Report 6123592-3 (Version None)
Quarter: 2009Q1

REPORT INFORMATION
  Report Type: 
  Country: None (occurrence: None)
  Receive Date: 20090317
  Receipt Date: 20090317
  Transmission Date: 20090719
  Serious: Yes (Other)
  Sender: FDA-Public Use
  Company Number: None

PATIENT
  Sex: Female
  Weight: 115.6672 kg

DRUGS (15)
  1. MORPHINE [Suspect]
     Indication: ARTHRITIS
     Dosage: 30 MG AM DAILY PO 60 MG PM DAILY PO
     Route: 048
  2. MORPHINE [Suspect]
     Indication: NEUROPATHY PERIPHERAL
     Dosage: 30 MG AM DAILY PO 60 MG PM DAILY PO
     Route: 048
  3. ZOCOR [Concomitant]
  4. PRILOSEC [Concomitant]
  5. ATENOLOL [Concomitant]
  6. LASIX [Concomitant]
  7. POTASSIUM CHLORIDE [Concomitant]
  8. CELEBREX [Concomitant]
  9. NEURONTIN [Concomitant]
  10. ASPIRIN [Concomitant]
  11. LORTAB [Concomitant]
  12. SENNA [Concomitant]
  13. ZYRTEC [Concomitant]
  14. WELLBUTRIN [Concomitant]
  15. COLACE [Concomitant]

REACTIONS (5)
  - CRYING [None]
  - GAIT DISTURBANCE [None]
  - MUSCLE SPASMS [None]
  - PAIN [None]
  - UNRESPONSIVE TO STIMULI [None]
